FAERS Safety Report 20893003 (Version 1)
Quarter: 2022Q2

REPORT INFORMATION
  Report Type: Spontaneous
  Country: US (occurrence: US)
  Receive Date: 20220531
  Receipt Date: 20220531
  Transmission Date: 20220721
  Serious: Yes (Hospitalization, Other)
  Sender: FDA-Public Use
  Company Number: US-BRISTOL-MYERS SQUIBB COMPANY-2022-046700

PATIENT
  Age: 82 Year
  Sex: Male
  Weight: 68.9 kg

DRUGS (1)
  1. REVLIMID [Suspect]
     Active Substance: LENALIDOMIDE
     Indication: Plasma cell myeloma
     Dosage: FREQUENCY : 3W, 1W OFF
     Route: 048
     Dates: start: 20210301

REACTIONS (2)
  - Haemoglobin decreased [Unknown]
  - Internal haemorrhage [Unknown]
